FAERS Safety Report 4546972-6 (Version None)
Quarter: 2005Q1

REPORT INFORMATION
  Report Type: 
  Country: None (occurrence: None)
  Receive Date: 20050106
  Receipt Date: 20041228
  Transmission Date: 20050727
  Serious: Yes (Death, Other)
  Sender: FDA-Public Use
  Company Number: US-MERCK-0412USA03167

PATIENT
  Age: 43 Year
  Sex: Male

DRUGS (1)
  1. VIOXX [Suspect]
     Indication: MONARTHRITIS
     Route: 048
     Dates: start: 20000101, end: 20011221

REACTIONS (2)
  - DEATH [None]
  - MYOCARDIAL INFARCTION [None]
